FAERS Safety Report 24839529 (Version 1)
Quarter: 2025Q1

REPORT INFORMATION
  Report Type: Spontaneous
  Country: US (occurrence: US)
  Receive Date: 20250114
  Receipt Date: 20250114
  Transmission Date: 20250409
  Serious: No
  Sender: BOEHRINGER INGELHEIM
  Company Number: US-Komodo Health-a23aa0000059jJBAAY

PATIENT
  Age: 82 Year
  Sex: Female

DRUGS (2)
  1. JARDIANCE [Suspect]
     Active Substance: EMPAGLIFLOZIN
     Indication: Type 2 diabetes mellitus
     Dates: start: 2023
  2. BUMEX [Concomitant]
     Active Substance: BUMETANIDE
     Indication: Polyuria

REACTIONS (3)
  - Chronic kidney disease [Not Recovered/Not Resolved]
  - Dizziness [Not Recovered/Not Resolved]
  - Oedema peripheral [Not Recovered/Not Resolved]
